FAERS Safety Report 18977936 (Version 1)
Quarter: 2021Q1

REPORT INFORMATION
  Report Type: Other
  Country: KR (occurrence: KR)
  Receive Date: 20210307
  Receipt Date: 20210307
  Transmission Date: 20210420
  Serious: Yes (Other)
  Sender: FDA-Public Use
  Company Number: KR-B.BRAUN MEDICAL INC.-2107654

PATIENT
  Age: 61 Year
  Sex: Female

DRUGS (2)
  1. HYALURONIC ACID GEL [Concomitant]
     Active Substance: HYALURONATE SODIUM
  2. LIDOCAINE HYDROCHLORIDE AND DEXTROSE [Suspect]
     Active Substance: DEXTROSE\LIDOCAINE HYDROCHLORIDE

REACTIONS (2)
  - Swelling [Recovering/Resolving]
  - Injection site mass [Recovering/Resolving]
